FAERS Safety Report 20186456 (Version 1)
Quarter: 2021Q4

REPORT INFORMATION
  Report Type: Spontaneous
  Country: US (occurrence: US)
  Receive Date: 20211215
  Receipt Date: 20211215
  Transmission Date: 20220304
  Serious: No
  Sender: FDA-Public Use
  Company Number: US-RECKITT BENCKISER HEALTHCARE INT LIMITED-RB-87355-2021

PATIENT
  Age: 5 Year
  Sex: Female
  Weight: 21.315 kg

DRUGS (2)
  1. DELSYM (DEXTROMETHORPHAN) [Suspect]
     Active Substance: DEXTROMETHORPHAN
     Indication: Product used for unknown indication
     Dosage: 10 MILLILITER, SINGLE
     Route: 065
     Dates: start: 20210402
  2. MELATONIN [Concomitant]
     Active Substance: MELATONIN
     Indication: Product used for unknown indication
     Dosage: UNK
     Route: 065

REACTIONS (2)
  - Accidental overdose [Unknown]
  - Glassy eyes [Unknown]

NARRATIVE: CASE EVENT DATE: 20210402
